FAERS Safety Report 17840791 (Version 1)
Quarter: 2020Q2

REPORT INFORMATION
  Report Type: Report from Study
  Country: US (occurrence: US)
  Receive Date: 20200529
  Receipt Date: 20200529
  Transmission Date: 20200714
  Serious: Yes (Other)
  Sender: FDA-Public Use
  Company Number: US-JNJFOC-20200524738

PATIENT

DRUGS (4)
  1. ADALIMUMAB [Suspect]
     Active Substance: ADALIMUMAB
     Indication: PRODUCT USED FOR UNKNOWN INDICATION
  2. ETANERCEPT [Suspect]
     Active Substance: ETANERCEPT
     Indication: PRODUCT USED FOR UNKNOWN INDICATION
  3. CERTOLIZUMAB [Suspect]
     Active Substance: CERTOLIZUMAB
     Indication: PRODUCT USED FOR UNKNOWN INDICATION
  4. REMICADE [Suspect]
     Active Substance: INFLIXIMAB
     Indication: PRODUCT USED FOR UNKNOWN INDICATION
     Route: 042

REACTIONS (13)
  - Encephalitis autoimmune [Unknown]
  - Central nervous system vasculitis [Unknown]
  - Pachymeningitis [Unknown]
  - Clinically isolated syndrome [Unknown]
  - Radiologically isolated syndrome [Unknown]
  - Neuromyelitis optica spectrum disorder [Unknown]
  - Encephalitis [Unknown]
  - Meningitis [Unknown]
  - Meningitis aseptic [Unknown]
  - Multiple sclerosis [Unknown]
  - Myelitis transverse [Unknown]
  - Neurosarcoidosis [Unknown]
  - Optic neuritis [Unknown]
